FAERS Safety Report 5853536-0 (Version None)
Quarter: 2008Q3

REPORT INFORMATION
  Report Type: 
  Country: None (occurrence: None)
  Receive Date: 20080822
  Receipt Date: 20080814
  Transmission Date: 20090109
  Serious: Yes (Hospitalization)
  Sender: FDA-Public Use
  Company Number: US-JNJFOC-20080803594

PATIENT
  Sex: Female
  Weight: 91.63 kg

DRUGS (5)
  1. DURAGESIC-100 [Suspect]
     Route: 062
  2. DURAGESIC-100 [Suspect]
     Route: 062
  3. DURAGESIC-100 [Suspect]
     Indication: PAIN
     Route: 062
  4. PREDNISONE TAB [Concomitant]
     Indication: AUTOIMMUNE DISORDER
     Route: 048
  5. METHOTREXATE SODIUM [Concomitant]
     Indication: AUTOIMMUNE DISORDER

REACTIONS (5)
  - APPLICATION SITE ERYTHEMA [None]
  - CEREBROVASCULAR ACCIDENT [None]
  - DERMATITIS CONTACT [None]
  - INCORRECT DRUG ADMINISTRATION DURATION [None]
  - SPINAL FRACTURE [None]
